FAERS Safety Report 7096971-8 (Version None)
Quarter: 2010Q4

REPORT INFORMATION
  Report Type: 
  Country: None (occurrence: None)
  Receive Date: 20101111
  Receipt Date: 20100331
  Transmission Date: 20110411
  Serious: No
  Sender: FDA-Public Use
  Company Number: US-KINGPHARMUSA00001-K201000387

PATIENT
  Sex: Female
  Weight: 77.098 kg

DRUGS (6)
  1. FLECTOR [Suspect]
     Indication: MUSCULOSKELETAL CHEST PAIN
     Dosage: 1-2 PATCH, QD
     Route: 061
     Dates: start: 20100201
  2. COREG [Concomitant]
     Indication: CARDIAC DISORDER
     Dosage: UNK
     Route: 048
  3. DIOVAN [Concomitant]
     Indication: HYPERTENSION
     Dosage: UNK
     Route: 048
  4. NORVASC [Concomitant]
     Indication: HYPERTENSION
     Dosage: UNK
     Route: 048
  5. NEXIUM [Concomitant]
     Indication: MALAISE
     Dosage: UNK
     Route: 048
  6. ZOCOR [Concomitant]
     Indication: BLOOD CHOLESTEROL INCREASED
     Dosage: UNK
     Route: 048

REACTIONS (4)
  - APPLICATION SITE DRYNESS [None]
  - APPLICATION SITE IRRITATION [None]
  - APPLICATION SITE RASH [None]
  - RASH MACULO-PAPULAR [None]
